FAERS Safety Report 13535652 (Version 3)
Quarter: 2017Q2

REPORT INFORMATION
  Report Type: Spontaneous
  Country: DK (occurrence: DK)
  Receive Date: 20170511
  Receipt Date: 20170629
  Transmission Date: 20170830
  Serious: Yes (Hospitalization, Disabling, Other)
  Sender: FDA-Public Use
  Company Number: DK-PFIZER INC-2017202102

PATIENT
  Age: 69 Year
  Sex: Male

DRUGS (5)
  1. ENBREL [Concomitant]
     Active Substance: ETANERCEPT
     Indication: PSORIASIS
     Dosage: UNK
     Route: 065
     Dates: start: 200703, end: 201511
  2. STELARA [Concomitant]
     Active Substance: USTEKINUMAB
     Indication: PSORIASIS
     Dosage: UNK
     Route: 065
     Dates: start: 201511
  3. METHOTREXATE. [Suspect]
     Active Substance: METHOTREXATE
     Indication: PSORIASIS
     Dosage: UNK
     Route: 065
     Dates: start: 2000, end: 20070328
  4. METHOTREXATE. [Suspect]
     Active Substance: METHOTREXATE
     Dosage: UNK
     Dates: start: 201008, end: 201309
  5. METHOTREXATE. [Suspect]
     Active Substance: METHOTREXATE
     Dosage: UNK
     Dates: start: 201411, end: 201502

REACTIONS (12)
  - Drug ineffective [Unknown]
  - Liver disorder [Unknown]
  - Serum procollagen type III N-terminal propeptide increased [Unknown]
  - Hepatic cirrhosis [Not Recovered/Not Resolved]
  - Gamma-glutamyltransferase increased [Unknown]
  - Chronic hepatic failure [Not Recovered/Not Resolved]
  - Ascites [Recovered/Resolved]
  - Alanine aminotransferase increased [Unknown]
  - Splenomegaly [Not Recovered/Not Resolved]
  - Varices oesophageal [Not Recovered/Not Resolved]
  - Thrombosis [Unknown]
  - Biliary cirrhosis [Not Recovered/Not Resolved]

NARRATIVE: CASE EVENT DATE: 2006
